FAERS Safety Report 7981114-6 (Version None)
Quarter: 2011Q4

REPORT INFORMATION
  Report Type: 
  Country: None (occurrence: None)
  Receive Date: 20111212
  Receipt Date: 20111128
  Transmission Date: 20120403
  Serious: Yes (Hospitalization, Other)
  Sender: FDA-Public Use
  Company Number: 2009AL001791

PATIENT
  Age: 66 Year
  Sex: Male
  Weight: 95.2554 kg

DRUGS (37)
  1. DEMEROL [Concomitant]
  2. DIURETICS [Concomitant]
  3. CAPTOPRIL [Concomitant]
  4. LEVAQUIN [Concomitant]
  5. LEXAPRO [Concomitant]
  6. LISINOPRIL [Concomitant]
  7. UROXATRAL [Concomitant]
  8. WARFARIN SODIUM [Concomitant]
  9. HUMIBID [Concomitant]
  10. PREVACID [Concomitant]
  11. IV FLUIDS [Concomitant]
  12. DIGOXIN [Suspect]
     Indication: HEART RATE DECREASED
     Dosage: 0.25 MG;PO
     Route: 048
     Dates: start: 20040528, end: 20080318
  13. DIGOXIN [Suspect]
     Indication: DYSPNOEA
     Dosage: 0.25 MG;PO
     Route: 048
     Dates: start: 20040528, end: 20080318
  14. DOXYCYCLINE [Concomitant]
  15. METFORMIN HCL [Concomitant]
  16. METHYLPREDNISOLONE [Concomitant]
  17. METOPROLOL TARTRATE [Concomitant]
  18. ANTIBIOTICS [Concomitant]
  19. HYDRALAZINE HCL [Concomitant]
  20. LIPITOR [Concomitant]
  21. MEVACOR [Concomitant]
  22. INSULIN [Concomitant]
  23. THERALITH XR [Concomitant]
  24. GLYBURIDE [Concomitant]
  25. ACTOS [Concomitant]
  26. ASPIRIN [Concomitant]
  27. INDAPMIDE [Concomitant]
  28. VIAGRA [Concomitant]
  29. LOVAZA [Concomitant]
  30. MULTI-VITAMIN [Concomitant]
  31. ACTIFED [Concomitant]
  32. AMARYL [Concomitant]
  33. ASPIRIN [Concomitant]
  34. NOVOLIN 70/30 [Concomitant]
  35. HEPARIN [Concomitant]
  36. VANCOMYCIN HYCHLORIDE [Concomitant]
  37. ROCEPHIN [Concomitant]

REACTIONS (45)
  - TOXICITY TO VARIOUS AGENTS [None]
  - SICK SINUS SYNDROME [None]
  - NOCTURIA [None]
  - NEPHROLITHIASIS [None]
  - ILEUS [None]
  - PULMONARY EMBOLISM [None]
  - VENTRICULAR EXTRASYSTOLES [None]
  - MYOCARDIAL ISCHAEMIA [None]
  - STAPHYLOCOCCUS TEST POSITIVE [None]
  - ABDOMINAL PAIN [None]
  - ATRIAL FIBRILLATION [None]
  - HYPERHIDROSIS [None]
  - ASTHENIA [None]
  - AORTIC STENOSIS [None]
  - RETINOPATHY [None]
  - GASTROOESOPHAGEAL REFLUX DISEASE [None]
  - IMPAIRED HEALING [None]
  - PLEURAL EFFUSION [None]
  - BRADYCARDIA [None]
  - CATARACT [None]
  - BLOOD TRIGLYCERIDES INCREASED [None]
  - DYSPNOEA [None]
  - THYROID CYST [None]
  - CALCULUS URINARY [None]
  - GLAUCOMA [None]
  - ERECTILE DYSFUNCTION [None]
  - BLOOD UREA INCREASED [None]
  - CULTURE WOUND POSITIVE [None]
  - GALLBLADDER DISORDER [None]
  - SCAN MYOCARDIAL PERFUSION ABNORMAL [None]
  - CORONARY ARTERY OCCLUSION [None]
  - NEUROPATHY PERIPHERAL [None]
  - HYPERTENSION [None]
  - CELLULITIS [None]
  - MITRAL VALVE INCOMPETENCE [None]
  - BUNDLE BRANCH BLOCK RIGHT [None]
  - ELECTROCARDIOGRAM ST-T CHANGE [None]
  - HYDRONEPHROSIS [None]
  - OSTEOMYELITIS [None]
  - ELECTROCARDIOGRAM T WAVE ABNORMAL [None]
  - BLOOD GLUCOSE INCREASED [None]
  - PULMONARY INFARCTION [None]
  - RENAL ARTERY STENOSIS [None]
  - ATRIOVENTRICULAR BLOCK COMPLETE [None]
  - CARDIOMEGALY [None]
